FAERS Safety Report 7630840-7 (Version None)
Quarter: 2011Q3

REPORT INFORMATION
  Report Type: 
  Country: None (occurrence: None)
  Receive Date: 20110723
  Receipt Date: 20110713
  Transmission Date: 20111222
  Serious: Yes (Hospitalization, Other)
  Sender: FDA-Public Use
  Company Number: GB-ABBOTT-11P-167-0702946-00

PATIENT

DRUGS (4)
  1. ADALIMUMAB [Suspect]
     Indication: CROHN'S DISEASE
     Route: 058
     Dates: start: 20070813, end: 20080901
  2. MERCAPTOPURINE [Concomitant]
     Indication: CROHN'S DISEASE
     Route: 048
     Dates: start: 20050101, end: 20080101
  3. ADALIMUMAB [Suspect]
     Dosage: RESTARTED POST SURGERY
     Dates: start: 20081201
  4. PREDNISOLONE [Concomitant]
     Indication: CROHN'S DISEASE
     Dosage: VARIOUS COURSES

REACTIONS (2)
  - POSTOPERATIVE ABSCESS [None]
  - FISTULA [None]
